FAERS Safety Report 25760594 (Version 1)
Quarter: 2025Q3

REPORT INFORMATION
  Report Type: Report from Study
  Country: BR (occurrence: BR)
  Receive Date: 20250904
  Receipt Date: 20250904
  Transmission Date: 20251021
  Serious: Yes (Other)
  Sender: TAKEDA
  Company Number: BR-TAKEDA-2025TUS076760

PATIENT
  Sex: Male

DRUGS (8)
  1. HEMO-8R [Suspect]
     Active Substance: ANTIHEMOPHILIC FACTOR, HUMAN RECOMBINANT
     Indication: Factor VIII deficiency
     Dosage: 2500 INTERNATIONAL UNIT, 3/WEEK
  2. HEMO-8R [Suspect]
     Active Substance: ANTIHEMOPHILIC FACTOR, HUMAN RECOMBINANT
     Indication: Prophylaxis
  3. MORPHINE [Concomitant]
     Active Substance: MORPHINE
  4. IBUPROFEN [Concomitant]
     Active Substance: IBUPROFEN
  5. ACETAMINOPHEN [Concomitant]
     Active Substance: ACETAMINOPHEN
  6. TRAMADOL [Concomitant]
     Active Substance: TRAMADOL
  7. CODEINE [Concomitant]
     Active Substance: CODEINE
  8. DIPYRONE [Concomitant]
     Active Substance: DIPYRONE

REACTIONS (5)
  - Haemophilic arthropathy [Unknown]
  - Haemorrhage [Unknown]
  - Atrophy [Unknown]
  - Gait disturbance [Unknown]
  - Inflammation [Recovering/Resolving]
